FAERS Safety Report 4555139-7 (Version None)
Quarter: 2004Q4

REPORT INFORMATION
  Report Type: 
  Country: None (occurrence: None)
  Receive Date: 20041217
  Receipt Date: 20040805
  Transmission Date: 20050328
  Serious: No
  Sender: FDA-Public Use
  Company Number: 2004-BP-05634BP

PATIENT
  Age: 72 Year
  Sex: Female
  Weight: 58.5 kg

DRUGS (11)
  1. SPIRIVA [Suspect]
     Indication: ACUTE RESPIRATORY DISTRESS SYNDROME
     Dosage: 18 MCG (18 MCG, 18 MCG OD)
  2. ACOLATE (ZAFIRLUKAST) [Concomitant]
  3. FOLIC ACID [Concomitant]
  4. VITAMINS C, B, E (VITAMINS) [Concomitant]
  5. ALBUTEROL [Concomitant]
  6. ATROVENT [Concomitant]
  7. DIAZIDE (GLICLAZIDE) [Concomitant]
  8. LASIX (LASIX) [Concomitant]
  9. COMBIVENT [Concomitant]
  10. ZITHROMAX Z - PACCK (AZITHROMYCIN) [Concomitant]
  11. DELESTROGEN [Concomitant]

REACTIONS (5)
  - APHONIA [None]
  - COUGH [None]
  - FATIGUE [None]
  - FEELING JITTERY [None]
  - HOARSENESS [None]
